FAERS Safety Report 4475832-4 (Version None)
Quarter: 2004Q3

REPORT INFORMATION
  Report Type: 
  Country: None (occurrence: None)
  Receive Date: 20040923
  Receipt Date: 20040708
  Transmission Date: 20050211
  Serious: No
  Sender: FDA-Public Use
  Company Number: USA040772190

PATIENT
  Age: 67 Year
  Sex: Female

DRUGS (7)
  1. FORTEO [Suspect]
     Indication: OSTEOPOROSIS POSTMENOPAUSAL
     Dates: start: 20030901
  2. FOSAMAX [Concomitant]
  3. CALCIUM [Concomitant]
  4. VITAMIN D [Concomitant]
  5. SYNTHROID [Concomitant]
  6. ACIDOPHILUS [Concomitant]
  7. LIBRIUM [Concomitant]

REACTIONS (2)
  - BONE DENSITY DECREASED [None]
  - DRUG INEFFECTIVE [None]
